FAERS Safety Report 14763785 (Version 1)
Quarter: 2018Q2

REPORT INFORMATION
  Report Type: Spontaneous
  Country: ZW (occurrence: ZW)
  Receive Date: 20180416
  Receipt Date: 20180416
  Transmission Date: 20180711
  Serious: Yes (Other)
  Sender: FDA-Public Use
  Company Number: ZW-ROCHE-2106941

PATIENT

DRUGS (2)
  1. HERCEPTIN [Suspect]
     Active Substance: TRASTUZUMAB
     Indication: PRODUCT USED FOR UNKNOWN INDICATION
     Dosage: 17 DOSES
     Route: 042
     Dates: start: 2013
  2. HERCEPTIN [Suspect]
     Active Substance: TRASTUZUMAB
     Indication: PRODUCT USED FOR UNKNOWN INDICATION
     Route: 065
     Dates: start: 201502

REACTIONS (5)
  - Angina pectoris [Unknown]
  - Dysgeusia [Unknown]
  - Nasal abscess [Unknown]
  - Drug administration error [Unknown]
  - Alopecia [Unknown]

NARRATIVE: CASE EVENT DATE: 20180115
